FAERS Safety Report 13898525 (Version 1)
Quarter: 2017Q3

REPORT INFORMATION
  Report Type: Spontaneous
  Country: US (occurrence: US)
  Receive Date: 20170824
  Receipt Date: 20170824
  Transmission Date: 20171127
  Serious: Yes (Death, Life-Threatening, Hospitalization, Other)
  Sender: FDA-Public Use
  Company Number: US-009507513-1708USA001569

PATIENT
  Age: 67 Year
  Sex: Male
  Weight: 55 kg

DRUGS (9)
  1. FENTANYL. [Concomitant]
     Active Substance: FENTANYL
     Dosage: 25 MCG/HOUR, UNK
     Dates: start: 20170417
  2. ACETAMINOPHEN (+) HYDROCODONE BITARTRATE [Concomitant]
     Active Substance: ACETAMINOPHEN\HYDROCODONE BITARTRATE
     Dosage: 7.5-325 MG, UNK
     Dates: start: 20170425
  3. AMIODARONE [Concomitant]
     Active Substance: AMIODARONE
     Dosage: UNKNOWN
  4. KEYTRUDA [Suspect]
     Active Substance: PEMBROLIZUMAB
     Indication: NON-SMALL CELL LUNG CANCER
     Dosage: 200 MG, EVERY 3 WEEKS, STRENGTH : 100 MG/4 ML
     Route: 042
     Dates: start: 20170411, end: 20170502
  5. ELIQUIS [Concomitant]
     Active Substance: APIXABAN
     Dosage: UNKNOWN
  6. DEXAMETHASONE. [Concomitant]
     Active Substance: DEXAMETHASONE
     Dosage: 4 MG, UNK
     Dates: start: 20170221
  7. LORAZEPAM. [Concomitant]
     Active Substance: LORAZEPAM
     Dosage: 0.5 MG, UNK
     Dates: start: 20170420
  8. OMEPRAZOLE. [Concomitant]
     Active Substance: OMEPRAZOLE
     Dosage: 20 MG, UNK
     Dates: start: 20170508
  9. AMBIEN [Concomitant]
     Active Substance: ZOLPIDEM TARTRATE
     Dosage: 5 MG, UNK
     Dates: start: 20170411

REACTIONS (6)
  - Asthenia [Not Recovered/Not Resolved]
  - Infection [Fatal]
  - Failure to thrive [Not Recovered/Not Resolved]
  - Pancytopenia [Not Recovered/Not Resolved]
  - Eating disorder [Not Recovered/Not Resolved]
  - Cancer pain [Not Recovered/Not Resolved]

NARRATIVE: CASE EVENT DATE: 2017
